FAERS Safety Report 5713879-8 (Version None)
Quarter: 2008Q2

REPORT INFORMATION
  Report Type: 
  Country: None (occurrence: None)
  Receive Date: 20080421
  Receipt Date: 20080404
  Transmission Date: 20081010
  Serious: Yes (Death)
  Sender: FDA-Public Use
  Company Number: A-CH2008-20129

PATIENT
  Age: 70 Year
  Sex: Male

DRUGS (2)
  1. TRACLEER [Suspect]
     Indication: PULMONARY HYPERTENSION
     Dosage: 125 MG, BID, ORAL
     Route: 048
     Dates: start: 20061201, end: 20070403
  2. TREPROSTINIL (TREPROSTINIL) [Concomitant]

REACTIONS (4)
  - DISEASE PROGRESSION [None]
  - OFF LABEL USE [None]
  - PULMONARY HYPERTENSION [None]
  - RIGHT VENTRICULAR FAILURE [None]
